FAERS Safety Report 6900996-X (Version None)
Quarter: 2010Q3

REPORT INFORMATION
  Report Type: 
  Country: None (occurrence: None)
  Receive Date: 20100803
  Receipt Date: 20100726
  Transmission Date: 20110219
  Serious: Yes (Death)
  Sender: FDA-Public Use
  Company Number: B0667997A

PATIENT
  Age: 49 Year
  Sex: Male

DRUGS (4)
  1. FONDAPARINUX SODIUM [Suspect]
     Dosage: 7.5MG PER DAY
     Route: 058
  2. WARFARIN [Suspect]
     Route: 065
  3. ENOXAPARIN SODIUM [Concomitant]
  4. GEMCITABINE [Concomitant]

REACTIONS (15)
  - BLOOD PRESSURE INCREASED [None]
  - CARDIAC TAMPONADE [None]
  - DRUG INEFFECTIVE [None]
  - DYSPNOEA [None]
  - ELECTROCARDIOGRAM QRS COMPLEX ABNORMAL [None]
  - HEART RATE DECREASED [None]
  - HEART SOUNDS [None]
  - JUGULAR VEIN DISTENSION [None]
  - MALAISE [None]
  - ORTHOPNOEA [None]
  - PERICARDIAL EFFUSION [None]
  - PERICARDIAL HAEMORRHAGE [None]
  - PYREXIA [None]
  - RESPIRATORY TRACT INFECTION VIRAL [None]
  - SINUS TACHYCARDIA [None]
